FAERS Safety Report 7028208-X (Version None)
Quarter: 2010Q4

REPORT INFORMATION
  Report Type: 
  Country: None (occurrence: None)
  Receive Date: 20101005
  Receipt Date: 20100926
  Transmission Date: 20110411
  Serious: Yes (Other)
  Sender: FDA-Public Use
  Company Number: DE-JNJFOC-20100907566

PATIENT
  Sex: Female

DRUGS (4)
  1. GALANTAMINE HYDROBROMIDE [Suspect]
     Indication: DEMENTIA ALZHEIMER'S TYPE
     Route: 048
  2. GALANTAMINE HYDROBROMIDE [Suspect]
     Route: 048
  3. GALANTAMINE HYDROBROMIDE [Suspect]
     Route: 048
  4. GALANTAMINE HYDROBROMIDE [Suspect]
     Route: 048

REACTIONS (6)
  - DRUG INTOLERANCE [None]
  - DYSPHAGIA [None]
  - INTENTIONAL DRUG MISUSE [None]
  - MUSCLE SPASTICITY [None]
  - MUSCULAR WEAKNESS [None]
  - RESTLESSNESS [None]
